FAERS Safety Report 10176705 (Version 1)
Quarter: 2014Q2

REPORT INFORMATION
  Report Type: Spontaneous
  Country: MX (occurrence: MX)
  Receive Date: 20140516
  Receipt Date: 20140516
  Transmission Date: 20141212
  Serious: Yes (Hospitalization, Disabling, Other)
  Sender: FDA-Public Use
  Company Number: MX-MPIJNJ-2014JNJ003449

PATIENT
  Sex: 0

DRUGS (2)
  1. VELCADE [Suspect]
     Indication: PLASMA CELL MYELOMA
     Route: 065
  2. DEXAMETHASONE [Concomitant]

REACTIONS (4)
  - Abasia [Unknown]
  - Neuropathy peripheral [Unknown]
  - Depressed mood [Unknown]
  - Hip fracture [Unknown]
